FAERS Safety Report 14408730 (Version 1)
Quarter: 2018Q1

REPORT INFORMATION
  Report Type: Spontaneous
  Country: FR (occurrence: FR)
  Receive Date: 20180119
  Receipt Date: 20180119
  Transmission Date: 20180509
  Serious: Yes (Hospitalization)
  Sender: FDA-Public Use
  Company Number: FR-SUN PHARMACEUTICAL INDUSTRIES LTD-2018RR-160428

PATIENT
  Age: 38 Year
  Sex: Male

DRUGS (2)
  1. BACLOFEN. [Suspect]
     Active Substance: BACLOFEN
     Indication: PRODUCT USED FOR UNKNOWN INDICATION
     Dosage: 8 DF, IN TOTAL
     Route: 048
     Dates: start: 20171030, end: 20171030
  2. DIAZEPAM. [Suspect]
     Active Substance: DIAZEPAM
     Indication: PRODUCT USED FOR UNKNOWN INDICATION
     Dosage: DIAZEPAM 10MG
     Route: 048
     Dates: start: 20171030, end: 20171030

REACTIONS (1)
  - Drug abuse [Recovered/Resolved]

NARRATIVE: CASE EVENT DATE: 20171030
